FAERS Safety Report 7308623-7 (Version None)
Quarter: 2011Q1

REPORT INFORMATION
  Report Type: 
  Country: None (occurrence: None)
  Receive Date: 20110223
  Receipt Date: 20110218
  Transmission Date: 20110831
  Serious: Yes (Death, Hospitalization)
  Sender: FDA-Public Use
  Company Number: GB-MERCK-1102GBR00052

PATIENT
  Age: 86 Year
  Sex: Male
  Weight: 83 kg

DRUGS (8)
  1. LANSOPRAZOLE [Concomitant]
     Route: 065
  2. MELOXICAM [Concomitant]
     Indication: ARTHRALGIA
     Route: 065
  3. SINEMET [Suspect]
     Indication: PARKINSON'S DISEASE
     Route: 048
     Dates: start: 20090101
  4. PREGABALIN [Concomitant]
     Route: 065
     Dates: end: 20090209
  5. ASPIRIN [Concomitant]
     Route: 065
  6. ALENDRONATE SODIUM [Concomitant]
     Indication: OSTEOPOROSIS
     Route: 065
  7. RAMIPRIL [Concomitant]
     Route: 065
  8. TRAMADOL HYDROCHLORIDE [Suspect]
     Indication: BACK PAIN
     Route: 048
     Dates: start: 20090209, end: 20100210

REACTIONS (12)
  - NECK PAIN [None]
  - DRUG INTERACTION [None]
  - PNEUMONIA [None]
  - ACUTE MYOCARDIAL INFARCTION [None]
  - HEADACHE [None]
  - SUBARACHNOID HAEMORRHAGE [None]
  - MENINGITIS [None]
  - PULMONARY EMBOLISM [None]
  - CEREBRAL INFARCTION [None]
  - CONFUSIONAL STATE [None]
  - DRUG INEFFECTIVE [None]
  - SEPSIS [None]
